FAERS Safety Report 19543046 (Version 1)
Quarter: 2021Q3

REPORT INFORMATION
  Report Type: Spontaneous
  Country: DE (occurrence: DE)
  Receive Date: 20210713
  Receipt Date: 20210713
  Transmission Date: 20211014
  Serious: Yes (Other)
  Sender: FDA-Public Use
  Company Number: DE-ROCHE-2842065

PATIENT
  Sex: Female
  Weight: 102 kg

DRUGS (4)
  1. METOPROLOL. [Concomitant]
     Active Substance: METOPROLOL
     Indication: HYPERTENSION
     Route: 048
  2. DEKRISTOL [Concomitant]
     Active Substance: CHOLECALCIFEROL
  3. KADCYLA [Suspect]
     Active Substance: ADO-TRASTUZUMAB EMTANSINE
     Indication: BREAST CANCER METASTATIC
     Dosage: APPROX. 71 CYCLES OF KADCYLA
     Route: 042
     Dates: start: 20170120, end: 20210430
  4. VALSARTAN. [Concomitant]
     Active Substance: VALSARTAN
     Indication: HYPERTENSION
     Route: 048

REACTIONS (6)
  - Hypersensitivity [Unknown]
  - Splenomegaly [Unknown]
  - Portal hypertension [Unknown]
  - Infusion related reaction [Unknown]
  - Hepatic cirrhosis [Not Recovered/Not Resolved]
  - Hepatic cyst [Unknown]

NARRATIVE: CASE EVENT DATE: 20210505
